FAERS Safety Report 14474797 (Version 1)
Quarter: 2018Q1

REPORT INFORMATION
  Report Type: Spontaneous
  Country: US (occurrence: US)
  Receive Date: 20180201
  Receipt Date: 20180201
  Transmission Date: 20180509
  Serious: Yes (Other)
  Sender: FDA-Public Use
  Company Number: US-PFIZER INC-2018038393

PATIENT
  Age: 7 Year
  Sex: Male
  Weight: 27.9 kg

DRUGS (2)
  1. QUILLIVANT XR [Suspect]
     Active Substance: METHYLPHENIDATE HYDROCHLORIDE
     Indication: ATTENTION DEFICIT/HYPERACTIVITY DISORDER
     Dosage: 4 ML, DAILY
     Route: 048
     Dates: start: 201509
  2. QUILLIVANT XR [Suspect]
     Active Substance: METHYLPHENIDATE HYDROCHLORIDE
     Indication: OPPOSITIONAL DEFIANT DISORDER
     Dosage: 2 ML, DAILY
     Route: 048

REACTIONS (6)
  - Decreased appetite [Unknown]
  - Intentional product use issue [Unknown]
  - Disturbance in attention [Unknown]
  - Growth failure [Unknown]
  - Anxiety [Unknown]
  - Drug dose omission [Not Recovered/Not Resolved]

NARRATIVE: CASE EVENT DATE: 2015
